FAERS Safety Report 4559311-1 (Version None)
Quarter: 2005Q1

REPORT INFORMATION
  Report Type: 
  Country: None (occurrence: None)
  Receive Date: 20050124
  Receipt Date: 20050113
  Transmission Date: 20050727
  Serious: Yes (Other)
  Sender: FDA-Public Use
  Company Number: SE-JNJFOC-20050103495

PATIENT
  Age: 15 Year
  Sex: Male

DRUGS (1)
  1. CONCERTA [Suspect]
     Indication: ATTENTION DEFICIT/HYPERACTIVITY DISORDER
     Route: 049
     Dates: start: 20040701, end: 20041207

REACTIONS (3)
  - ABDOMINAL PAIN UPPER [None]
  - BRADYCARDIA [None]
  - WEIGHT DECREASED [None]
